FAERS Safety Report 8586760-7 (Version None)
Quarter: 2012Q3

REPORT INFORMATION
  Report Type: 
  Country: None (occurrence: None)
  Receive Date: 20120810
  Receipt Date: 20120807
  Transmission Date: 20120928
  Serious: Yes (Other)
  Sender: FDA-Public Use
  Company Number: GB-PFIZER INC-2012191492

PATIENT
  Age: 42 Year
  Sex: Female

DRUGS (1)
  1. VARENICLINE [Suspect]
     Route: 048
     Dates: start: 20120629, end: 20120714

REACTIONS (3)
  - MALAISE [None]
  - VAGINAL HAEMORRHAGE [None]
  - HYPERHIDROSIS [None]
